FAERS Safety Report 21419450 (Version 1)
Quarter: 2022Q4

REPORT INFORMATION
  Report Type: Spontaneous
  Country: DE (occurrence: DE)
  Receive Date: 20221006
  Receipt Date: 20221006
  Transmission Date: 20230113
  Serious: Yes (Hospitalization, Other)
  Sender: FDA-Public Use
  Company Number: DE-ADRED-07809-01

PATIENT
  Age: 97 Year
  Sex: Female
  Weight: 51 kg

DRUGS (18)
  1. CLOPIDOGREL BISULFATE [Suspect]
     Active Substance: CLOPIDOGREL BISULFATE
     Dosage: 75 MG, 1-0-0-0
  2. ASPIRIN [Suspect]
     Active Substance: ASPIRIN
     Dosage: 100 MG
  3. APIXABAN [Suspect]
     Active Substance: APIXABAN
     Dosage: 2.5 MG, 1-0-0-0
  4. CANDESARTAN [Concomitant]
     Active Substance: CANDESARTAN
     Dosage: 16 MG, 1-0-1-0
  5. BISOPROLOL [Concomitant]
     Active Substance: BISOPROLOL
     Dosage: 5 MG, 1-0-1-0
  6. ALENDRONIC ACID [Concomitant]
     Active Substance: ALENDRONIC ACID
     Dosage: 70 MG, SCHEME
  7. CHOLECALCIFEROL [Concomitant]
     Active Substance: CHOLECALCIFEROL
     Dosage: 1000 IE, 1-0-0-0
  8. LEVOTHYROXINE SODIUM [Concomitant]
     Active Substance: LEVOTHYROXINE SODIUM
     Dosage: 50MCG, 1-0-0-0
  9. PREDNISOLONE [Concomitant]
     Active Substance: PREDNISOLONE
     Dosage: 1 MG, 1-0-0-0
  10. POTASSIUM [Concomitant]
     Active Substance: POTASSIUM
     Dosage: 1-1-0-0
  11. TORSEMIDE [Concomitant]
     Active Substance: TORSEMIDE
     Dosage: 10 MG, 2-1-0-0
  12. METAMIZOLE [Concomitant]
     Active Substance: METAMIZOLE
     Dosage: 500 MG, 1-1-1-0
  13. CALCIUM [Concomitant]
     Active Substance: CALCIUM
     Dosage: 800 MG, 1-0-0-0
  14. ALLOPURINOL [Concomitant]
     Active Substance: ALLOPURINOL
     Dosage: 150 MG, 0-0-1-0
  15. FENTANYL [Concomitant]
     Active Substance: FENTANYL
     Dosage: 12.5 UG, SCHEME
     Route: 062
  16. ATORVASTATIN [Concomitant]
     Active Substance: ATORVASTATIN
     Dosage: 40 MG, 0-0-1-0
  17. PANTOPRAZOLE [Concomitant]
     Active Substance: PANTOPRAZOLE
     Dosage: 20 MG, 1-0-0-0
  18. DIGITOXIN [Concomitant]
     Active Substance: DIGITOXIN
     Dosage: 0.05 MG, 1-0-0-0

REACTIONS (11)
  - Tachycardia [Unknown]
  - Oedema peripheral [Unknown]
  - Arrhythmia [Unknown]
  - Atrial fibrillation [Unknown]
  - General physical health deterioration [Unknown]
  - Diverticulum intestinal haemorrhagic [Unknown]
  - Haematochezia [Unknown]
  - Spontaneous haemorrhage [Unknown]
  - Systemic infection [Unknown]
  - Renal impairment [Unknown]
  - Anaemia [Unknown]
